FAERS Safety Report 23050651 (Version 1)
Quarter: 2023Q4

REPORT INFORMATION
  Report Type: Spontaneous
  Country: BR (occurrence: BR)
  Receive Date: 20231010
  Receipt Date: 20231010
  Transmission Date: 20240110
  Serious: Yes (Other)
  Sender: FDA-Public Use
  Company Number: BR-SUN PHARMACEUTICAL INDUSTRIES LTD-2023R1-411028

PATIENT
  Age: 52 Year
  Sex: Female
  Weight: 46 kg

DRUGS (1)
  1. MINOCYCLINE [Suspect]
     Active Substance: MINOCYCLINE HYDROCHLORIDE
     Indication: Rosacea
     Dosage: 100 MILLIGRAM, QD
     Route: 048
     Dates: start: 20230927

REACTIONS (7)
  - Balance disorder [Recovered/Resolved]
  - Nausea [Recovered/Resolved]
  - Somnolence [Recovered/Resolved]
  - Confusional state [Recovered/Resolved]
  - Decreased appetite [Recovered/Resolved]
  - Dry mouth [Not Recovered/Not Resolved]
  - Dysgeusia [Not Recovered/Not Resolved]

NARRATIVE: CASE EVENT DATE: 20230927
